FAERS Safety Report 7476846-2 (Version None)
Quarter: 2011Q2

REPORT INFORMATION
  Report Type: 
  Country: None (occurrence: None)
  Receive Date: 20110512
  Receipt Date: 20110502
  Transmission Date: 20111010
  Serious: Yes (Hospitalization, Other)
  Sender: FDA-Public Use
  Company Number: FR-ELI_LILLY_AND_COMPANY-FR201105000099

PATIENT
  Age: 59 Year
  Sex: Male
  Weight: 73 kg

DRUGS (7)
  1. ASPIRIN [Concomitant]
  2. BISOPROLOL FUMARATE [Concomitant]
     Dosage: UNK
     Route: 048
     Dates: start: 20100909
  3. METFORMIN HCL [Concomitant]
     Dosage: UNK
     Route: 048
     Dates: start: 20100701
  4. EFFIENT [Suspect]
     Dosage: 60 MG, LOADING DOSE
     Route: 048
     Dates: start: 20100915
  5. EFFIENT [Suspect]
     Dosage: 10 MG, QD (MAINTENANCE DOSE)
     Route: 048
  6. RAMIPRIL [Concomitant]
     Dosage: UNK, UNKNOWN
     Route: 065
  7. ATORVASTATIN CALCIUM [Concomitant]
     Dosage: UNK
     Route: 048
     Dates: start: 20100909

REACTIONS (3)
  - VESSEL PUNCTURE SITE HAEMATOMA [None]
  - GASTROINTESTINAL HAEMORRHAGE [None]
  - BARRETT'S OESOPHAGUS [None]
